FAERS Safety Report 24355397 (Version 1)
Quarter: 2024Q3

REPORT INFORMATION
  Report Type: Spontaneous
  Country: US (occurrence: US)
  Receive Date: 20240924
  Receipt Date: 20240924
  Transmission Date: 20241016
  Serious: No
  Sender: AMGEN
  Company Number: US-AMGEN-USASP2024186055

PATIENT

DRUGS (1)
  1. BLINCYTO [Suspect]
     Active Substance: BLINATUMOMAB
     Indication: Product used for unknown indication
     Dosage: UNK, INFUSING VIA CENTRAL VEIN (SINGLE LUMEN PORT-ACATH) TO PERIPHERAL VEIN
     Route: 042

REACTIONS (1)
  - Blood culture positive [Unknown]
